FAERS Safety Report 6372087-0 (Version None)
Quarter: 2009Q3

REPORT INFORMATION
  Report Type: 
  Country: None (occurrence: None)
  Receive Date: 20090917
  Receipt Date: 20090903
  Transmission Date: 20100115
  Serious: Yes (Hospitalization)
  Sender: FDA-Public Use
  Company Number: 1000008779

PATIENT
  Age: 84 Year
  Sex: Female

DRUGS (10)
  1. NEBIVOLOL HCL [Suspect]
     Dosage: 5 MG (5 MG, 1 IN 1 D), ORAL
     Route: 048
     Dates: start: 20080101
  2. DILTIAZEM [Suspect]
     Dosage: 200 MG (200 MG, 1 IN 1 D), ORAL
     Route: 048
     Dates: start: 20080101, end: 20090802
  3. RASILEZ [Concomitant]
  4. OLMESARTAN MEDOXOMIL [Concomitant]
  5. MOXON [Concomitant]
  6. NITROGLYCERIN [Concomitant]
  7. CARDYL [Concomitant]
  8. TROMALYT [Concomitant]
  9. TERTENSIF [Concomitant]
  10. OMEPRAZOLE [Concomitant]

REACTIONS (5)
  - ATRIOVENTRICULAR BLOCK FIRST DEGREE [None]
  - BACK PAIN [None]
  - DRUG INTERACTION [None]
  - GAIT DISTURBANCE [None]
  - HYPERTENSIVE CARDIOMYOPATHY [None]
